FAERS Safety Report 6018728-9 (Version None)
Quarter: 2008Q4

REPORT INFORMATION
  Report Type: 
  Country: None (occurrence: None)
  Receive Date: 20081222
  Receipt Date: 20081120
  Transmission Date: 20090506
  Serious: No
  Sender: FDA-Public Use
  Company Number: 8039845

PATIENT
  Age: 23 Year
  Sex: Male

DRUGS (2)
  1. KEPPRA [Suspect]
     Dosage: 500 MG 2/D PO
     Route: 048
  2. KEPPRA [Suspect]
     Dosage: 500 MG 2/D PO
     Route: 048

REACTIONS (1)
  - DRUG DISPENSING ERROR [None]
